FAERS Safety Report 8123144-X (Version None)
Quarter: 2012Q1

REPORT INFORMATION
  Report Type: 
  Country: None (occurrence: None)
  Receive Date: 20120206
  Receipt Date: 20120124
  Transmission Date: 20120608
  Serious: Yes (Hospitalization, Disabling, Other)
  Sender: FDA-Public Use
  Company Number: 2012MA001085

PATIENT
  Sex: Female
  Weight: 66.6788 kg

DRUGS (17)
  1. BENADRYL [Concomitant]
  2. DILTIAZEM HCL [Concomitant]
  3. NEURONTIN [Concomitant]
  4. ULTRAM [Concomitant]
  5. ATENOLOL [Concomitant]
  6. LISINOPRIL [Concomitant]
  7. COUMADIN [Concomitant]
  8. ALPRAZOLAM [Concomitant]
  9. M.V.I. [Concomitant]
  10. APAP TAB [Concomitant]
  11. VICODIN [Concomitant]
  12. PREMARIN [Concomitant]
  13. ASCORBIC ACID [Concomitant]
  14. CENESTIN [Concomitant]
  15. DIGOXIN [Suspect]
     Dosage: 0.25 MG;QD;PO
     Route: 048
     Dates: start: 20040405, end: 20090326
  16. HYDROCHLOROTHIAZIDE [Concomitant]
  17. POTASSIUM CHLORIDE [Concomitant]

REACTIONS (7)
  - ARRHYTHMIA [None]
  - HALLUCINATION [None]
  - PNEUMONIA [None]
  - ASTHENIA [None]
  - ACTIVITIES OF DAILY LIVING IMPAIRED [None]
  - TOXICITY TO VARIOUS AGENTS [None]
  - BALANCE DISORDER [None]
